FAERS Safety Report 6333374-5 (Version None)
Quarter: 2009Q3

REPORT INFORMATION
  Report Type: 
  Country: None (occurrence: None)
  Receive Date: 20090828
  Receipt Date: 20090826
  Transmission Date: 20100115
  Serious: Yes (Hospitalization)
  Sender: FDA-Public Use
  Company Number: US-B.I. PHARMACEUTICALS,INC./RIDGEFIELD-2009-BP-09228BP

PATIENT
  Age: 70 Year
  Sex: Female
  Weight: 76.7 kg

DRUGS (1)
  1. AGGRENOX [Suspect]

REACTIONS (1)
  - CEREBROVASCULAR ACCIDENT [None]
